FAERS Safety Report 8172112-0 (Version None)
Quarter: 2012Q1

REPORT INFORMATION
  Report Type: 
  Country: None (occurrence: None)
  Receive Date: 20120228
  Receipt Date: 20120216
  Transmission Date: 20120608
  Serious: Yes (Other)
  Sender: FDA-Public Use
  Company Number: GB-ELI_LILLY_AND_COMPANY-GB201201007376

PATIENT
  Sex: Male
  Weight: 124 kg

DRUGS (5)
  1. LEVEMIR [Concomitant]
  2. BYDUREON [Suspect]
     Dosage: 2 MG, WEEKLY (1/W)
     Route: 058
     Dates: start: 20111125, end: 20111225
  3. NOVORAPID [Concomitant]
  4. EXENATIDE [Suspect]
     Dosage: UNK, UNKNOWN
  5. EXENATIDE [Suspect]
     Dosage: UNK, UNKNOWN

REACTIONS (3)
  - WEIGHT DECREASED [None]
  - BLOOD GLUCOSE INCREASED [None]
  - OFF LABEL USE [None]
